FAERS Safety Report 18385186 (Version 2)
Quarter: 2020Q4

REPORT INFORMATION
  Report Type: Spontaneous
  Country: HU (occurrence: HU)
  Receive Date: 20201015
  Receipt Date: 20201027
  Transmission Date: 20210114
  Serious: Yes (Hospitalization)
  Sender: FDA-Public Use
  Company Number: HU-B.I. PHARMACEUTICALS,INC./RIDGEFIELD-2020-BI-053486

PATIENT
  Age: 64 Year
  Sex: Male
  Weight: 75 kg

DRUGS (4)
  1. OFEV [Suspect]
     Active Substance: NINTEDANIB
     Route: 065
     Dates: start: 20190824, end: 20190926
  2. OFEV [Suspect]
     Active Substance: NINTEDANIB
     Route: 065
     Dates: start: 20181126, end: 20190810
  3. OFEV [Suspect]
     Active Substance: NINTEDANIB
     Dosage: 1X1, DAILY
     Route: 065
     Dates: start: 201910
  4. OFEV [Suspect]
     Active Substance: NINTEDANIB
     Indication: INTERSTITIAL LUNG DISEASE
     Route: 065
     Dates: start: 2018, end: 20181126

REACTIONS (3)
  - Gamma-glutamyltransferase increased [Recovering/Resolving]
  - Carotid artery disease [Recovering/Resolving]
  - Faeces discoloured [Recovered/Resolved]

NARRATIVE: CASE EVENT DATE: 20190926
